FAERS Safety Report 22259197 (Version 1)
Quarter: 2023Q2

REPORT INFORMATION
  Report Type: Spontaneous
  Country: IN (occurrence: IN)
  Receive Date: 20230427
  Receipt Date: 20230427
  Transmission Date: 20230722
  Serious: Yes (Death, Hospitalization, Other)
  Sender: FDA-Public Use
  Company Number: IN-PFIZER INC-202101658288

PATIENT
  Age: 61 Year
  Sex: Female

DRUGS (4)
  1. PALBOCICLIB [Suspect]
     Active Substance: PALBOCICLIB
     Indication: Breast cancer metastatic
     Dosage: 1-0-0 X 21/28 DAYS
     Route: 048
  2. PALBOCICLIB [Suspect]
     Active Substance: PALBOCICLIB
     Dosage: 100 MG, 1X/DAY
     Route: 048
  3. LETROZOLE [Concomitant]
     Active Substance: LETROZOLE
     Dosage: 1 HS X 28 DAYS
  4. LETROZOLE [Concomitant]
     Active Substance: LETROZOLE
     Dosage: 1-0-0 X TO BE CONTROL

REACTIONS (3)
  - Death [Fatal]
  - Sepsis [Unknown]
  - Pyrexia [Unknown]

NARRATIVE: CASE EVENT DATE: 20230415
